FAERS Safety Report 25189125 (Version 6)
Quarter: 2025Q4

REPORT INFORMATION
  Report Type: Report from Study
  Country: US (occurrence: US)
  Receive Date: 20250411
  Receipt Date: 20251222
  Transmission Date: 20260118
  Serious: Yes (Hospitalization, Other)
  Sender: ABBVIE
  Company Number: US-ABBVIE-6218982

PATIENT
  Age: 81 Year
  Sex: Female
  Weight: 78.471 kg

DRUGS (3)
  1. IMBRUVICA [Suspect]
     Active Substance: IBRUTINIB
     Indication: Chronic lymphocytic leukaemia
     Dosage: FORM STRENGTH: 420 MILLIGRAM
     Route: 048
     Dates: start: 201808
  2. IMBRUVICA [Suspect]
     Active Substance: IBRUTINIB
     Indication: Chronic lymphocytic leukaemia
     Dosage: FORM STRENGTH: 420 MILLIGRAM
     Route: 048
     Dates: start: 202207
  3. DEXAMETHASONE [Concomitant]
     Active Substance: DEXAMETHASONE
     Indication: Product used for unknown indication

REACTIONS (11)
  - Wrist fracture [Recovering/Resolving]
  - Lung carcinoma cell type unspecified stage I [Not Recovered/Not Resolved]
  - Shoulder fracture [Unknown]
  - Pulmonary mass [Unknown]
  - Rhinorrhoea [Unknown]
  - Mobility decreased [Unknown]
  - Fall [Unknown]
  - Depressed mood [Unknown]
  - Upper limb fracture [Unknown]
  - Loss of personal independence in daily activities [Unknown]
  - Road traffic accident [Unknown]

NARRATIVE: CASE EVENT DATE: 20210101
